FAERS Safety Report 13130874 (Version 1)
Quarter: 2017Q1

REPORT INFORMATION
  Report Type: Report from Study
  Country: US (occurrence: US)
  Receive Date: 20170119
  Receipt Date: 20170119
  Transmission Date: 20170428
  Serious: Yes (Hospitalization)
  Sender: FDA-Public Use
  Company Number: US-JNJFOC-20170116601

PATIENT
  Age: 85 Year
  Sex: Male

DRUGS (5)
  1. IMBRUVICA [Suspect]
     Active Substance: IBRUTINIB
     Indication: COAGULOPATHY
     Route: 048
     Dates: start: 20160413
  2. IMBRUVICA [Suspect]
     Active Substance: IBRUTINIB
     Indication: ESSENTIAL HYPERTENSION
     Route: 048
     Dates: start: 20160413
  3. IMBRUVICA [Suspect]
     Active Substance: IBRUTINIB
     Indication: GASTROOESOPHAGEAL REFLUX DISEASE
     Route: 048
     Dates: start: 20160413
  4. IMBRUVICA [Suspect]
     Active Substance: IBRUTINIB
     Indication: WEIGHT DECREASED
     Route: 048
     Dates: start: 20160413
  5. IMBRUVICA [Suspect]
     Active Substance: IBRUTINIB
     Indication: ANAEMIA
     Route: 048
     Dates: start: 20160413

REACTIONS (3)
  - Product use issue [Unknown]
  - Transient ischaemic attack [Unknown]
  - Off label use [Unknown]

NARRATIVE: CASE EVENT DATE: 20160413
